FAERS Safety Report 21066649 (Version 2)
Quarter: 2022Q3

REPORT INFORMATION
  Report Type: Spontaneous
  Country: JP (occurrence: JP)
  Receive Date: 20220711
  Receipt Date: 20220721
  Transmission Date: 20221026
  Serious: Yes (Hospitalization, Other)
  Sender: FDA-Public Use
  Company Number: JP-AMGEN-JPNSP2022117789

PATIENT
  Age: 79 Year
  Sex: Female
  Weight: 42.5 kg

DRUGS (12)
  1. PARSABIV [Suspect]
     Active Substance: ETELCALCETIDE HYDROCHLORIDE
     Indication: Hyperparathyroidism secondary
     Dosage: 2.5 MILLIGRAM, 3 TIMES/WK
     Route: 042
     Dates: start: 20181122, end: 20190219
  2. PARSABIV [Suspect]
     Active Substance: ETELCALCETIDE HYDROCHLORIDE
     Dosage: 5 MILLIGRAM, 3 TIMES/WK
     Route: 042
     Dates: start: 20190221, end: 20190413
  3. PARSABIV [Suspect]
     Active Substance: ETELCALCETIDE HYDROCHLORIDE
     Dosage: 2.5 MILLIGRAM, 3 TIMES/WK
     Route: 042
     Dates: start: 20190416, end: 20191210
  4. PARSABIV [Suspect]
     Active Substance: ETELCALCETIDE HYDROCHLORIDE
     Dosage: 2.5 MILLIGRAM, 2 TIMES/WK
     Route: 042
     Dates: start: 20191210
  5. ALFACALCIDOL [Concomitant]
     Active Substance: ALFACALCIDOL
     Dosage: 6 MICROGRAM, QWK
     Dates: start: 20180724
  6. EPOETIN ALFA [Concomitant]
     Active Substance: ERYTHROPOIETIN
     Dosage: 9000 (INTERNATIONAL UNIT), QWK
  7. SODIUM FERROUS CITRATE [Concomitant]
     Active Substance: SODIUM FERROUS CITRATE
     Dosage: 150 MILLIGRAM
     Dates: end: 20190109
  8. OXAROL [Concomitant]
     Active Substance: MAXACALCITOL
     Dosage: 2.5 MICROGRAM, 2 TIMES/WK
     Dates: start: 20190305, end: 20190319
  9. OXAROL [Concomitant]
     Active Substance: MAXACALCITOL
     Dosage: 5 MICROGRAM, 2 TIMES/WK
     Dates: start: 20190323, end: 20191207
  10. OXAROL [Concomitant]
     Active Substance: MAXACALCITOL
     Dosage: 10 MICROGRAM, 2 TIMES/WK
     Dates: start: 20191210, end: 20200310
  11. OXAROL [Concomitant]
     Active Substance: MAXACALCITOL
     Dosage: 10 MICROGRAM, 3 TIMES/WK
     Dates: start: 20200314
  12. P-tol [Concomitant]
     Dosage: 750 MILLIGRAM, QD

REACTIONS (1)
  - Acute myocardial infarction [Recovering/Resolving]

NARRATIVE: CASE EVENT DATE: 20210911
